FAERS Safety Report 8353648-6 (Version None)
Quarter: 2012Q2

REPORT INFORMATION
  Report Type: 
  Country: None (occurrence: None)
  Receive Date: 20120511
  Receipt Date: 20120503
  Transmission Date: 20120825
  Serious: Yes (Other)
  Sender: FDA-Public Use
  Company Number: CA-UCBSA-053119

PATIENT
  Age: 53 Year
  Sex: Female
  Weight: 68 kg

DRUGS (9)
  1. CERTOLIZUMAB PEGOL [Suspect]
     Indication: RHEUMATOID ARTHRITIS
     Dosage: NUMBER OF DOSES RECEIVED :03
     Route: 058
     Dates: start: 20110704, end: 20110801
  2. CERTOLIZUMAB PEGOL [Suspect]
     Dosage: NUMBER OF DOSES RECEIVED : 15
     Route: 058
     Dates: start: 20110815, end: 20120228
  3. METHOTREXATE [Concomitant]
     Indication: RHEUMATOID ARTHRITIS
     Dosage: DOSE:25MG QUANTITY SUFFICIENT
     Route: 048
     Dates: start: 20100825
  4. LIPITOR [Concomitant]
     Indication: BLOOD CHOLESTEROL INCREASED
     Dosage: QPM
     Route: 048
     Dates: start: 19850101
  5. DICLOFENAC SR [Concomitant]
     Indication: RHEUMATOID ARTHRITIS
     Dosage: QAM
     Route: 048
     Dates: start: 20020101
  6. LEFLUNOMIDE [Concomitant]
     Dates: start: 20101102, end: 20110704
  7. NORVASC [Concomitant]
     Indication: HYPERTENSION
     Route: 048
     Dates: start: 20020101
  8. CYMBALTA [Concomitant]
     Indication: DEPRESSION
     Route: 048
     Dates: start: 20100101
  9. SYNTHROID [Concomitant]
     Indication: HYPOTHYROIDISM
     Route: 048
     Dates: start: 20020101

REACTIONS (1)
  - HODGKIN'S DISEASE [None]
